FAERS Safety Report 11839720 (Version 1)
Quarter: 2015Q4

REPORT INFORMATION
  Report Type: Spontaneous
  Country: US (occurrence: None)
  Receive Date: 20151214
  Receipt Date: 20151214
  Transmission Date: 20160305
  Serious: No
  Sender: FDA-Public Use
  Company Number: None

PATIENT
  Age: 46 Year
  Sex: Male
  Weight: 80.74 kg

DRUGS (7)
  1. MAALOX ANTACID [Concomitant]
     Active Substance: ALUMINUM HYDROXIDE\DIMETHICONE\MAGNESIUM HYDROXIDE
  2. BENADRYL [Concomitant]
     Active Substance: DIPHENHYDRAMINE HYDROCHLORIDE
  3. DEPAKOTE ER [Concomitant]
     Active Substance: DIVALPROEX SODIUM
  4. COGENTIN [Concomitant]
     Active Substance: BENZTROPINE MESYLATE
  5. KLONOPIN [Concomitant]
     Active Substance: CLONAZEPAM
  6. ABILIFY [Suspect]
     Active Substance: ARIPIPRAZOLE
     Dosage: 20 MG/ 1 PILL
     Route: 048
     Dates: start: 20151123, end: 20151125
  7. TYLENOL [Concomitant]
     Active Substance: ACETAMINOPHEN

REACTIONS (1)
  - Joint stiffness [None]

NARRATIVE: CASE EVENT DATE: 20151124
